FAERS Safety Report 9137728 (Version 2)
Quarter: 2013Q1

REPORT INFORMATION
  Report Type: Spontaneous
  Country: US (occurrence: US)
  Receive Date: 20130304
  Receipt Date: 20130318
  Transmission Date: 20140127
  Serious: Yes (Other)
  Sender: FDA-Public Use
  Company Number: US-PFIZER INC-2013070768

PATIENT
  Age: 3 Year
  Sex: Male
  Weight: 26 kg

DRUGS (1)
  1. XYNTHA SOLOFUSE [Suspect]
     Dosage: 30 IU/KG, AS NEEDED

REACTIONS (3)
  - Haemorrhage [Unknown]
  - Disease complication [Unknown]
  - Joint injury [Unknown]
